FAERS Safety Report 9183143 (Version 1)
Quarter: 2013Q1

REPORT INFORMATION
  Report Type: Spontaneous
  Country: US (occurrence: US)
  Receive Date: 20130322
  Receipt Date: 20130322
  Transmission Date: 20140127
  Serious: Yes (Other)
  Sender: FDA-Public Use
  Company Number: US-BRISTOL-MYERS SQUIBB COMPANY-16383903

PATIENT
  Age: 83 Year
  Sex: Male

DRUGS (4)
  1. ERBITUX [Suspect]
     Indication: HEAD AND NECK CANCER
     Dosage: DOSE:451MG?IV INFUSION
     Route: 042
     Dates: start: 20120131
  2. ERBITUX [Suspect]
     Indication: LARYNGEAL CANCER
     Dosage: DOSE:451MG?IV INFUSION
     Route: 042
     Dates: start: 20120131
  3. TYLENOL [Concomitant]
     Route: 048
  4. BENADRYL [Concomitant]
     Route: 042

REACTIONS (2)
  - Bronchospasm [Recovered/Resolved]
  - Chills [Recovered/Resolved]
